FAERS Safety Report 21401983 (Version 1)
Quarter: 2022Q3

REPORT INFORMATION
  Report Type: Spontaneous
  Country: US (occurrence: None)
  Receive Date: 20220930
  Receipt Date: 20220930
  Transmission Date: 20221027
  Serious: No
  Sender: FDA-Public Use
  Company Number: None

PATIENT
  Sex: Male

DRUGS (1)
  1. NUCALA [Suspect]
     Active Substance: MEPOLIZUMAB
     Indication: Asthma
     Dosage: OTHER FREQUENCY : Q 28DAYS;?
     Route: 058

REACTIONS (4)
  - Product packaging quantity issue [None]
  - Manufacturing product shipping issue [None]
  - Device defective [None]
  - Product dose omission issue [None]
